FAERS Safety Report 4960247-2 (Version None)
Quarter: 2006Q1

REPORT INFORMATION
  Report Type: 
  Country: None (occurrence: None)
  Receive Date: 20060328
  Receipt Date: 20060320
  Transmission Date: 20060701
  Serious: Yes (Hospitalization, Disabling, Other)
  Sender: FDA-Public Use
  Company Number: 2006039291

PATIENT
  Sex: Female
  Weight: 61.2356 kg

DRUGS (15)
  1. DILANTIN KAPSEAL [Suspect]
     Indication: CONVULSION
     Dosage: 100 MG, EVERY OTHER DAY, ORAL
     Route: 048
  2. TOPROL-XL [Concomitant]
  3. PROTONIX [Concomitant]
  4. ISORDIL [Concomitant]
  5. SEROQUEL [Concomitant]
  6. KLOR-CON [Concomitant]
  7. HYDROCHLOROTHIAZIDE [Concomitant]
  8. KLONOPIN [Concomitant]
  9. DESYREL [Concomitant]
  10. MS CONTIN [Concomitant]
  11. ALBUTEROL [Concomitant]
  12. LIDODERM PATCH (LIDOCAINE HYDROCHLORIDE) [Concomitant]
  13. ASPIRIN [Concomitant]
  14. LORTAB [Concomitant]
  15. AXERT [Concomitant]

REACTIONS (16)
  - ABDOMINAL HERNIA [None]
  - ANKLE FRACTURE [None]
  - ARTHRITIS [None]
  - BRAIN NEOPLASM [None]
  - CARDIAC DISORDER [None]
  - CARDIAC MURMUR [None]
  - CEREBRAL CYST [None]
  - CEREBROVASCULAR ACCIDENT [None]
  - DIFFICULTY IN WALKING [None]
  - GASTROINTESTINAL ULCER [None]
  - HERNIA [None]
  - INTESTINAL POLYP [None]
  - OESOPHAGEAL DISORDER [None]
  - POST PROCEDURAL COMPLICATION [None]
  - PRECANCEROUS CELLS PRESENT [None]
  - THORACIC VERTEBRAL FRACTURE [None]
